FAERS Safety Report 10979927 (Version 1)
Quarter: 2015Q2

REPORT INFORMATION
  Report Type: Spontaneous
  Country: CH (occurrence: CH)
  Receive Date: 20150402
  Receipt Date: 20150402
  Transmission Date: 20150821
  Serious: Yes (Hospitalization)
  Sender: FDA-Public Use
  Company Number: CH-ASTRAZENECA-2015SE28735

PATIENT
  Age: 636 Month
  Sex: Female

DRUGS (4)
  1. SELEGILIN [Suspect]
     Active Substance: SELEGILINE
     Route: 048
     Dates: start: 201405, end: 20140622
  2. SEROQUEL [Suspect]
     Active Substance: QUETIAPINE FUMARATE
     Route: 048
     Dates: start: 201404
  3. SOLATRAN [Suspect]
     Active Substance: KETAZOLAM
     Route: 048
     Dates: start: 201404
  4. STRATTERA [Suspect]
     Active Substance: ATOMOXETINE HYDROCHLORIDE
     Route: 048

REACTIONS (7)
  - Hyperhidrosis [Unknown]
  - Contraindication to medical treatment [Recovered/Resolved]
  - Vomiting [Unknown]
  - Disorientation [Unknown]
  - Ventricular extrasystoles [Unknown]
  - Tremor [Unknown]
  - Headache [Unknown]

NARRATIVE: CASE EVENT DATE: 201405
